FAERS Safety Report 20751390 (Version 1)
Quarter: 2022Q2

REPORT INFORMATION
  Report Type: Spontaneous
  Country: US (occurrence: US)
  Receive Date: 20220426
  Receipt Date: 20220426
  Transmission Date: 20220720
  Serious: No
  Sender: FDA-Public Use
  Company Number: US-GILEAD-2022-0579288

PATIENT
  Age: 25 Year
  Sex: Male

DRUGS (1)
  1. TRUVADA [Suspect]
     Active Substance: EMTRICITABINE\TENOFOVIR DISOPROXIL FUMARATE
     Indication: Prophylaxis against HIV infection
     Route: 065

REACTIONS (6)
  - Bone pain [Unknown]
  - Bone disorder [Unknown]
  - Vomiting [Unknown]
  - Insomnia [Unknown]
  - Chills [Unknown]
  - Inappropriate schedule of product administration [Recovered/Resolved]
